FAERS Safety Report 24270333 (Version 1)
Quarter: 2024Q3

REPORT INFORMATION
  Report Type: Spontaneous
  Country: DE (occurrence: DE)
  Receive Date: 20240830
  Receipt Date: 20240830
  Transmission Date: 20241017
  Serious: Yes (Other)
  Sender: TEVA
  Company Number: None

PATIENT
  Age: 55 Year
  Sex: Female
  Weight: 76 kg

DRUGS (1)
  1. ROSUVASTATIN [Suspect]
     Active Substance: ROSUVASTATIN\ROSUVASTATIN CALCIUM
     Indication: Arteriosclerosis
     Dosage: ROSUVASTATIN RATIOPHARM
     Route: 065
     Dates: start: 20240727, end: 20240811

REACTIONS (14)
  - Ocular myasthenia [Recovering/Resolving]
  - Fatigue [Recovering/Resolving]
  - Aura [Recovering/Resolving]
  - Fatigue [Recovering/Resolving]
  - Muscle spasms [Recovering/Resolving]
  - Tinnitus [Recovering/Resolving]
  - Muscular weakness [Recovering/Resolving]
  - Myasthenic syndrome [Recovering/Resolving]
  - Visual field defect [Recovering/Resolving]
  - Fatigue [Recovering/Resolving]
  - Tongue movement disturbance [Recovering/Resolving]
  - Photopsia [Recovering/Resolving]
  - Impaired work ability [Recovering/Resolving]
  - Visual impairment [Recovering/Resolving]

NARRATIVE: CASE EVENT DATE: 20240701
